FAERS Safety Report 9676914 (Version 2)
Quarter: 2013Q4

REPORT INFORMATION
  Report Type: Report from Study
  Country: NL (occurrence: NL)
  Receive Date: 20131108
  Receipt Date: 20131114
  Transmission Date: 20140711
  Serious: Yes (Hospitalization)
  Sender: FDA-Public Use
  Company Number: NL-ROCHE-1297817

PATIENT
  Sex: 0

DRUGS (4)
  1. CAPECITABINE [Suspect]
     Indication: GASTRIC CANCER
     Dosage: LAST DOSE PRIOR TO SAE: 21/MAR/2012, TWICE DAILY FOR 2 WEEKS
     Route: 048
     Dates: start: 20120315
  2. EPIRUBICIN [Suspect]
     Indication: GASTRIC CANCER
     Dosage: LAST DOSE PRIOR TO SAE: 15/MAR/2012
     Route: 042
     Dates: start: 20120315
  3. CISPLATINUM [Suspect]
     Indication: GASTRIC CANCER
     Dosage: LAST DOSE PRIOR TO SAE: 15/MAR/2012
     Route: 042
     Dates: start: 20120315
  4. GRANISETRON [Concomitant]
     Route: 065
     Dates: start: 20121116, end: 20121116

REACTIONS (2)
  - Faecaloma [Recovered/Resolved]
  - Constipation [Recovered/Resolved]
